FAERS Safety Report 17250763 (Version 1)
Quarter: 2019Q4

REPORT INFORMATION
  Report Type: Spontaneous
  Country: US (occurrence: US)
  Receive Date: 20191213
  Receipt Date: 20191213
  Transmission Date: 20200122
  Serious: Yes (Hospitalization)
  Sender: FDA-Public Use
  Company Number: None

PATIENT
  Age: 74 Year
  Sex: Male
  Weight: 96 kg

DRUGS (3)
  1. VERAPAMIL (VERAPAMIL HCL 40MG TAB) [Suspect]
     Active Substance: VERAPAMIL HYDROCHLORIDE
     Indication: HYPERTENSION
     Route: 048
     Dates: start: 20191011, end: 20191013
  2. CLONIDINE (CLONIDINE 0.1MG/24HRS PATCH) [Suspect]
     Active Substance: CLONIDINE
     Indication: HYPERTENSION
     Dates: start: 20191009, end: 20191013
  3. CLONIDINE (CLONIDINE 0.1MG/24HRS PATCH) [Suspect]
     Active Substance: CLONIDINE
     Dates: start: 20190910, end: 20191013

REACTIONS (5)
  - Hypotension [None]
  - Pneumonia [None]
  - Bradycardia [None]
  - Acute kidney injury [None]
  - Respiratory failure [None]

NARRATIVE: CASE EVENT DATE: 20191013
